FAERS Safety Report 15564854 (Version 1)
Quarter: 2018Q4

REPORT INFORMATION
  Report Type: Spontaneous
  Country: US (occurrence: US)
  Receive Date: 20181030
  Receipt Date: 20181030
  Transmission Date: 20190205
  Serious: No
  Sender: FDA-Public Use
  Company Number: US-PFIZER INC-2018440292

PATIENT
  Age: 67 Year
  Sex: Female
  Weight: 151.5 kg

DRUGS (13)
  1. LYRICA [Suspect]
     Active Substance: PREGABALIN
     Indication: DIABETIC NEUROPATHY
  2. LYRICA [Suspect]
     Active Substance: PREGABALIN
     Indication: NEUROPATHY PERIPHERAL
  3. TRAMADOL HCL [Suspect]
     Active Substance: TRAMADOL HYDROCHLORIDE
     Indication: DIABETIC NEUROPATHY
  4. TRAMADOL HCL [Suspect]
     Active Substance: TRAMADOL HYDROCHLORIDE
     Indication: FIBROMYALGIA
     Dosage: 100MG TABLETS 3 TIMES PER DAY BY MOUTH
     Route: 048
  5. LYRICA [Suspect]
     Active Substance: PREGABALIN
     Indication: HERPES ZOSTER
  6. FENTANYL. [Suspect]
     Active Substance: FENTANYL
     Indication: DIABETIC NEUROPATHY
  7. FENTANYL. [Suspect]
     Active Substance: FENTANYL
     Indication: NEUROPATHY PERIPHERAL
  8. LYRICA [Suspect]
     Active Substance: PREGABALIN
     Indication: FIBROMYALGIA
     Dosage: 100MG FOUR TIMES DAILY BY MOUTH
     Route: 048
  9. TRAMADOL HCL [Suspect]
     Active Substance: TRAMADOL HYDROCHLORIDE
     Indication: HERPES ZOSTER
  10. NEURONTIN [Concomitant]
     Active Substance: GABAPENTIN
  11. FENTANYL. [Suspect]
     Active Substance: FENTANYL
     Indication: HERPES ZOSTER
  12. TRAMADOL HCL [Suspect]
     Active Substance: TRAMADOL HYDROCHLORIDE
     Indication: NEUROPATHY PERIPHERAL
  13. FENTANYL. [Suspect]
     Active Substance: FENTANYL
     Indication: FIBROMYALGIA

REACTIONS (1)
  - Weight decreased [Unknown]
